FAERS Safety Report 24882285 (Version 1)
Quarter: 2025Q1

REPORT INFORMATION
  Report Type: Spontaneous
  Country: CL (occurrence: CL)
  Receive Date: 20250124
  Receipt Date: 20250124
  Transmission Date: 20250409
  Serious: Yes (Hospitalization, Other)
  Sender: JOHNSON AND JOHNSON
  Company Number: CL-JNJFOC-20250160973

PATIENT
  Age: 18 Year
  Sex: Male

DRUGS (3)
  1. REMICADE [Suspect]
     Active Substance: INFLIXIMAB
     Indication: Colitis ulcerative
     Route: 041
  2. REMICADE [Suspect]
     Active Substance: INFLIXIMAB
     Route: 041
  3. AZATHIOPRINE [Concomitant]
     Active Substance: AZATHIOPRINE
     Indication: Colitis ulcerative

REACTIONS (7)
  - Colitis ulcerative [Not Recovered/Not Resolved]
  - Hospitalisation [Unknown]
  - Infection [Unknown]
  - Iron deficiency anaemia [Unknown]
  - Drug specific antibody [Unknown]
  - Drug ineffective [Unknown]
  - Off label use [Unknown]
